FAERS Safety Report 18317897 (Version 1)
Quarter: 2020Q3

REPORT INFORMATION
  Report Type: Spontaneous
  Country: US (occurrence: US)
  Receive Date: 20200928
  Receipt Date: 20200928
  Transmission Date: 20201103
  Serious: No
  Sender: FDA-Public Use
  Company Number: US-ASTRAZENECA-2020SF21584

PATIENT
  Sex: Male
  Weight: 104.3 kg

DRUGS (3)
  1. SYMBICORT [Suspect]
     Active Substance: BUDESONIDE\FORMOTEROL FUMARATE DIHYDRATE
     Indication: ASTHMA
     Dosage: 80/4.5, ONE PUFF TWICE DAILY
     Route: 055
  2. ALBUTEROL INHALER [Concomitant]
     Active Substance: ALBUTEROL
  3. SYMBICORT [Suspect]
     Active Substance: BUDESONIDE\FORMOTEROL FUMARATE DIHYDRATE
     Indication: ASTHMA
     Dosage: ONCE PUFF ONCE A DAY
     Route: 055

REACTIONS (5)
  - Oral pain [Unknown]
  - Oral discomfort [Unknown]
  - Wrong technique in product usage process [Unknown]
  - Oral candidiasis [Unknown]
  - Intentional product misuse [Unknown]
